FAERS Safety Report 7546920-0 (Version None)
Quarter: 2011Q2

REPORT INFORMATION
  Report Type: 
  Country: None (occurrence: None)
  Receive Date: 20110607
  Receipt Date: 20110523
  Transmission Date: 20111010
  Serious: Yes (Life-Threatening, Hospitalization)
  Sender: FDA-Public Use
  Company Number: 2011MA006342

PATIENT
  Age: 50 Year
  Sex: Female

DRUGS (2)
  1. AMOXICILLIN AND CLAVULANATE POTASSIUM [Concomitant]
  2. IBUPROFEN [Suspect]
     Indication: SINUSITIS
     Route: 048
     Dates: start: 20050601, end: 20050601

REACTIONS (7)
  - FEELING ABNORMAL [None]
  - OXYGEN SATURATION DECREASED [None]
  - NASAL POLYPS [None]
  - MYOCARDIAL INFARCTION [None]
  - HYPOTENSION [None]
  - PALPITATIONS [None]
  - VENTRICULAR TACHYCARDIA [None]
